FAERS Safety Report 8819213 (Version 3)
Quarter: 2012Q4

REPORT INFORMATION
  Report Type: 
  Country: US (occurrence: US)
  Receive Date: 20121001
  Receipt Date: 20121108
  Transmission Date: 20130627
  Serious: No
  Sender: FDA-Public Use
  Company Number: US-PFIZER INC-2012241655

PATIENT
  Age: 51 Year
  Sex: Female
  Weight: 95.24 kg

DRUGS (6)
  1. XANAX [Suspect]
     Indication: ANXIETY
     Dosage: 0.25mg by splitting in half, three times a day
     Route: 048
     Dates: start: 1990
  2. XANAX [Suspect]
     Indication: NERVOUSNESS
     Dosage: 0.375 mg, daily
     Route: 048
     Dates: end: 201202
  3. XANAX [Suspect]
     Indication: DIZZINESS
  4. SYNTHROID [Suspect]
     Indication: THYROID DISORDER
     Dosage: 137 ug, daily
     Dates: start: 2006
  5. KARIVA [Suspect]
     Indication: BIRTH CONTROL
     Dosage: UNK, daily
     Dates: end: 201204
  6. REMICADE [Concomitant]
     Indication: ULCERATIVE COLITIS
     Dosage: UNK, every 8 weeks
     Route: 042

REACTIONS (3)
  - Off label use [Recovered/Resolved]
  - Drug ineffective for unapproved indication [Recovered/Resolved]
  - Drug ineffective [Recovered/Resolved]
